FAERS Safety Report 10213400 (Version 2)
Quarter: 2014Q2

REPORT INFORMATION
  Report Type: Spontaneous
  Country: GB (occurrence: None)
  Receive Date: 20140529
  Receipt Date: 20140611
  Transmission Date: 20141212
  Serious: Yes (Hospitalization)
  Sender: FDA-Public Use
  Company Number: FK201401729

PATIENT
  Age: 58 Year
  Sex: Male

DRUGS (15)
  1. CISPLATIN [Suspect]
     Indication: BLADDER CANCER
     Route: 041
     Dates: start: 20130628, end: 20130830
  2. GEMCITABINE [Suspect]
     Indication: BLADDER CANCER
     Route: 041
     Dates: start: 20130628, end: 20130830
  3. AMITRIPTYLINE (AMITRIPTYLINE) [Concomitant]
  4. GABAPENTIN (GABAPENTIN) [Concomitant]
  5. MORPHINE SULPHATE (MORPHINE SULFATE) [Concomitant]
  6. MACROGOL (MACROGOL) [Concomitant]
  7. PARACETAMOL (PARACETAMOL) [Concomitant]
  8. APREPITANT (APREPITANT) [Concomitant]
  9. DEXAMETHASONE (DEXAMETHASONE) [Concomitant]
  10. DOMPERIDONE (DOMPERIDONE) [Concomitant]
  11. ONDANSETRON (ONDANSETRON) [Concomitant]
  12. SENNA (SENNA ALEXANDRINA) [Concomitant]
  13. TAMSULOSIN (TAMSULOSIN) [Concomitant]
  14. CIPROFLOXACIN (CIPROFLOXACIN) [Concomitant]
  15. ENOXAPARIN (ENOXAPARIN) [Concomitant]

REACTIONS (5)
  - Dizziness [None]
  - Anaemia [None]
  - Malaise [None]
  - Metastatic carcinoma of the bladder [None]
  - Malignant neoplasm progression [None]
